FAERS Safety Report 10364325 (Version 1)
Quarter: 2014Q3

REPORT INFORMATION
  Report Type: Spontaneous
  Country: ES (occurrence: ES)
  Receive Date: 20140806
  Receipt Date: 20140806
  Transmission Date: 20150326
  Serious: Yes (Other)
  Sender: FDA-Public Use
  Company Number: ES-009507513-1408ESP001460

PATIENT
  Age: 84 Year
  Sex: Male

DRUGS (4)
  1. SINGULAIR [Suspect]
     Active Substance: MONTELUKAST SODIUM
     Indication: BRONCHIAL HYPERREACTIVITY
     Dosage: 10 MG, QD
     Route: 048
     Dates: start: 20140617, end: 20140710
  2. ATROALDO [Concomitant]
     Indication: BRONCHIAL HYPERREACTIVITY
     Dosage: UNK
     Route: 055
  3. SERETIDE [Concomitant]
     Active Substance: FLUTICASONE FUROATE\SALMETEROL XINAFOATE
     Indication: BRONCHIAL HYPERREACTIVITY
     Dosage: UNK
     Route: 055
  4. QUETIAPINE FUMARATE. [Concomitant]
     Active Substance: QUETIAPINE FUMARATE
     Indication: COGNITIVE DISORDER
     Dosage: 75 MG, QD
     Route: 048
     Dates: start: 2014

REACTIONS (4)
  - Disinhibition [Recovered/Resolved]
  - Disorientation [Recovered/Resolved]
  - Medication error [Recovered/Resolved]
  - Conduct disorder [Recovered/Resolved]

NARRATIVE: CASE EVENT DATE: 201407
